FAERS Safety Report 8036752-1 (Version None)
Quarter: 2012Q1

REPORT INFORMATION
  Report Type: 
  Country: None (occurrence: None)
  Receive Date: 20120111
  Receipt Date: 20111229
  Transmission Date: 20120608
  Serious: Yes (Hospitalization, Other)
  Sender: FDA-Public Use
  Company Number: IL-ROCHE-1026653

PATIENT
  Age: 75 Year
  Sex: Male

DRUGS (2)
  1. MABTHERA [Suspect]
     Indication: NEUROPATHY PERIPHERAL
  2. ESCITALOPRAM [Concomitant]

REACTIONS (6)
  - HYPONATRAEMIA [None]
  - ASTHENIA [None]
  - NAUSEA [None]
  - GENERAL PHYSICAL HEALTH DETERIORATION [None]
  - BEDRIDDEN [None]
  - DECREASED APPETITE [None]
